FAERS Safety Report 4345761-5 (Version None)
Quarter: 2004Q2

REPORT INFORMATION
  Report Type: 
  Country: None (occurrence: None)
  Receive Date: 20040421
  Receipt Date: 20040405
  Transmission Date: 20050107
  Serious: Yes (Hospitalization)
  Sender: FDA-Public Use
  Company Number: 6008297

PATIENT
  Age: 74 Year
  Sex: Female

DRUGS (6)
  1. LEVOTHYROX 100 (TABLETS) (LEVOTHYROXINE SODIUM) [Suspect]
     Dosage: 1 DOSAGE, ORAL
     Route: 048
     Dates: start: 20020917
  2. ATORVASTATIN CALCIUM [Suspect]
     Dosage: 2 DOSAGE, ORAL
     Route: 048
     Dates: start: 20020917
  3. VOLTARENE (50 MG) (DICLOFENAC) [Suspect]
     Dosage: 2 DOSE FORMS
     Dates: start: 20021130, end: 20021216
  4. PREVISCAN (FLUINDIONE) [Suspect]
     Dosage: ORAL
     Route: 048
     Dates: start: 20021207, end: 20021216
  5. RULID (ROXITHROMYCIN) [Suspect]
     Dosage: 2 DOSE FORMS, ORAL
     Route: 048
     Dates: start: 20021213, end: 20021216
  6. CORDARONE [Suspect]
     Dosage: ORAL
     Route: 048
     Dates: start: 20020917

REACTIONS (12)
  - ARTERIOVENOUS FISTULA, ACQUIRED [None]
  - BLOOD FIBRINOGEN DECREASED [None]
  - COAGULATION FACTOR V LEVEL DECREASED [None]
  - COAGULATION FACTOR X LEVEL DECREASED [None]
  - DRUG INTERACTION [None]
  - HAEMATOCRIT DECREASED [None]
  - HAEMOGLOBIN DECREASED [None]
  - HAEMORRHAGE [None]
  - INTERNATIONAL NORMALISED RATIO INCREASED [None]
  - PALLOR [None]
  - PROTHROMBIN LEVEL DECREASED [None]
  - SKIN NECROSIS [None]
